FAERS Safety Report 20995493 (Version 8)
Quarter: 2025Q2

REPORT INFORMATION
  Report Type: Report from Study
  Country: US (occurrence: US)
  Receive Date: 20220622
  Receipt Date: 20250507
  Transmission Date: 20250717
  Serious: Yes (Other)
  Sender: ABBVIE
  Company Number: US-ABBVIE-22K-163-4441777-00

PATIENT
  Sex: Female

DRUGS (4)
  1. IMBRUVICA [Suspect]
     Active Substance: IBRUTINIB
     Indication: Waldenstrom^s macroglobulinaemia
     Route: 048
     Dates: start: 201804, end: 20181203
  2. IMBRUVICA [Suspect]
     Active Substance: IBRUTINIB
     Indication: Waldenstrom^s macroglobulinaemia
     Route: 048
     Dates: start: 201808
  3. IMBRUVICA [Suspect]
     Active Substance: IBRUTINIB
     Indication: Waldenstrom^s macroglobulinaemia
     Route: 048
     Dates: start: 20181204
  4. IMBRUVICA [Suspect]
     Active Substance: IBRUTINIB
     Indication: Waldenstrom^s macroglobulinaemia
     Dosage: DISCONTINUED IN DEC 2018
     Route: 048
     Dates: start: 201812

REACTIONS (21)
  - Neuronal neuropathy [Unknown]
  - Nasal congestion [Unknown]
  - Loss of personal independence in daily activities [Unknown]
  - Dysuria [Unknown]
  - Diarrhoea [Not Recovered/Not Resolved]
  - Spinal fracture [Unknown]
  - Dyspnoea [Unknown]
  - Mobility decreased [Unknown]
  - Nephrolithiasis [Unknown]
  - Nephrolithiasis [Unknown]
  - Renal cyst [Unknown]
  - Fall [Unknown]
  - COVID-19 [Unknown]
  - Pain in extremity [Unknown]
  - Peripheral swelling [Unknown]
  - Rash macular [Not Recovered/Not Resolved]
  - Faeces hard [Unknown]
  - Dysstasia [Unknown]
  - Full blood count abnormal [Unknown]
  - Constipation [Not Recovered/Not Resolved]
  - Scab [Not Recovered/Not Resolved]
